FAERS Safety Report 5064007-6 (Version None)
Quarter: 2006Q3

REPORT INFORMATION
  Report Type: 
  Country: None (occurrence: None)
  Receive Date: 20060703
  Receipt Date: 20050926
  Transmission Date: 20061208
  Serious: No
  Sender: FDA-Public Use
  Company Number: 2005S1009751

PATIENT
  Age: 49 Year
  Sex: Female
  Weight: 80.7403 kg

DRUGS (17)
  1. CLOZAPINE [Suspect]
     Indication: SCHIZOPHRENIA, PARANOID TYPE
     Dosage: SEE IMAGE
     Route: 048
     Dates: start: 20050601, end: 20050908
  2. CLOZAPINE [Suspect]
     Indication: SCHIZOPHRENIA, PARANOID TYPE
     Dosage: SEE IMAGE
     Route: 048
     Dates: start: 20050601
  3. CLOZAPINE [Suspect]
     Indication: SCHIZOPHRENIA, PARANOID TYPE
     Dosage: SEE IMAGE
     Route: 048
     Dates: start: 20050909
  4. ATENOLOL [Concomitant]
  5. TRIHEXYPHENIDYL HYDROCHLORIDE [Concomitant]
  6. PANTOPRAZOLE SODIUM [Concomitant]
  7. TRAZODONE HCL [Concomitant]
  8. DESMOPRESSIN [Concomitant]
  9. METOPROLOL TARTRATE [Concomitant]
  10. METOCLOPRAMIDE HYDROCHLORIDE [Concomitant]
  11. CLONAZEPAM [Concomitant]
  12. KETOROLAC TROMETHAMINE [Concomitant]
  13. PROMETHAZINE HCL [Concomitant]
  14. PANCRELIPASE [Concomitant]
  15. HYDROXYZINE HYDROCHLORIDE [Concomitant]
  16. METHYLPREDNISOLONE [Concomitant]
  17. ESCITALOPRAM [Concomitant]

REACTIONS (1)
  - GRANULOCYTOPENIA [None]
